FAERS Safety Report 6956510-6 (Version None)
Quarter: 2010Q3

REPORT INFORMATION
  Report Type: 
  Country: None (occurrence: None)
  Receive Date: 20100830
  Receipt Date: 20100729
  Transmission Date: 20110219
  Serious: No
  Sender: FDA-Public Use
  Company Number: US-AMGEN-KDL428359

PATIENT
  Age: 61 Year
  Sex: Female
  Weight: 99.9 kg

DRUGS (8)
  1. PROCRIT [Suspect]
     Indication: ANAEMIA OF MALIGNANT DISEASE
     Dates: start: 20100726
  2. NEUPOGEN [Suspect]
     Indication: CHEMOTHERAPY
     Dates: start: 20100722
  3. ZANTAC [Concomitant]
     Dates: start: 20100722
  4. PRAVASTATIN [Concomitant]
  5. UNSPECIFIED THYROID MEDICATION [Concomitant]
  6. VITAMIN D [Concomitant]
  7. VITAMIN B1 TAB [Concomitant]
  8. ADVIL LIQUI-GELS [Concomitant]

REACTIONS (3)
  - EPISTAXIS [None]
  - FLATULENCE [None]
  - SINUS HEADACHE [None]
